FAERS Safety Report 23843007 (Version 1)
Quarter: 2024Q2

REPORT INFORMATION
  Report Type: Spontaneous
  Country: US (occurrence: None)
  Receive Date: 20240510
  Receipt Date: 20240510
  Transmission Date: 20240716
  Serious: Yes (Hospitalization)
  Sender: FDA-Public Use
  Company Number: None

PATIENT
  Age: 54 Year
  Sex: Female
  Weight: 65 kg

DRUGS (1)
  1. PONATINIB HYDROCHLORIDE [Suspect]
     Active Substance: PONATINIB HYDROCHLORIDE
     Dates: end: 20240430

REACTIONS (5)
  - Palpitations [None]
  - Chest discomfort [None]
  - Atrial fibrillation [None]
  - Weight increased [None]
  - Swelling face [None]

NARRATIVE: CASE EVENT DATE: 20240429
